FAERS Safety Report 17896149 (Version 1)
Quarter: 2020Q2

REPORT INFORMATION
  Report Type: Spontaneous
  Country: US (occurrence: US)
  Receive Date: 20200601
  Receipt Date: 20200601
  Transmission Date: 20200714
  Serious: Yes (Hospitalization)
  Sender: FDA-Public Use
  Company Number: None

PATIENT
  Age: 68 Year
  Sex: Male
  Weight: 96.8 kg

DRUGS (5)
  1. ENZALUTAMIDE, 160MG [Suspect]
     Active Substance: ENZALUTAMIDE
     Indication: PROSTATE CANCER
     Dosage: 160MG SID ORAL
     Route: 048
     Dates: start: 20191218, end: 20200218
  2. TIOTROPIUM RESPIMAT [Concomitant]
     Active Substance: TIOTROPIUM
  3. LORATADINE. [Concomitant]
     Active Substance: LORATADINE
  4. ALBUTEROL. [Concomitant]
     Active Substance: ALBUTEROL
  5. PEMBROLIZUMAB, 200MG [Suspect]
     Active Substance: PEMBROLIZUMAB
     Indication: PROSTATE CANCER
     Route: 042
     Dates: start: 20191218, end: 20200128

REACTIONS (4)
  - Pelvic infection [None]
  - Haematoma [None]
  - Abscess [None]
  - Pelvic fluid collection [None]

NARRATIVE: CASE EVENT DATE: 20200526
